FAERS Safety Report 6158233-2 (Version None)
Quarter: 2009Q2

REPORT INFORMATION
  Report Type: 
  Country: None (occurrence: None)
  Receive Date: 20090417
  Receipt Date: 20080402
  Transmission Date: 20091009
  Serious: No
  Sender: FDA-Public Use
  Company Number: US-AMGEN-US272615

PATIENT
  Sex: Female

DRUGS (1)
  1. SENSIPAR [Suspect]
     Indication: HYPERPARATHYROIDISM SECONDARY
     Route: 048
     Dates: start: 20080331, end: 20080331

REACTIONS (4)
  - BONE PAIN [None]
  - DECREASED APPETITE [None]
  - DRY MOUTH [None]
  - PARANOIA [None]
